FAERS Safety Report 19487240 (Version 1)
Quarter: 2021Q3

REPORT INFORMATION
  Report Type: Other
  Country: US (occurrence: US)
  Receive Date: 20210702
  Receipt Date: 20210702
  Transmission Date: 20211014
  Serious: No
  Sender: FDA-Public Use
  Company Number: US-FAGRON STERILE SERVICES-2113414

PATIENT

DRUGS (1)
  1. MITOMYCIN 0.02% (0.2MG/ML) INJ SOLN 1ML SINGLE USE SYRINGE. [Suspect]
     Active Substance: MITOMYCIN

REACTIONS (1)
  - Drug ineffective [None]
